FAERS Safety Report 24251232 (Version 2)
Quarter: 2024Q3

REPORT INFORMATION
  Report Type: Spontaneous
  Country: US (occurrence: US)
  Receive Date: 20240826
  Receipt Date: 20240920
  Transmission Date: 20241017
  Serious: Yes (Life-Threatening, Hospitalization)
  Sender: TEVA
  Company Number: US-TEVA-VS-3236239

PATIENT
  Age: 44 Year
  Sex: Female

DRUGS (6)
  1. CARBOPLATIN [Suspect]
     Active Substance: CARBOPLATIN
     Indication: Malignant mediastinal neoplasm
     Dosage: RECEIVED ONE CYCLE
     Route: 065
  2. CISPLATIN [Suspect]
     Active Substance: CISPLATIN
     Indication: Malignant mediastinal neoplasm
     Dosage: RECEIVED SIX CYCLES UNDER CAP REGIMEN
     Route: 065
  3. CYTOXAN [Suspect]
     Active Substance: CYCLOPHOSPHAMIDE
     Indication: Malignant mediastinal neoplasm
     Dosage: RECEIVED SIX CYCLES UNDER CAP REGIMEN
     Route: 065
  4. DOXORUBICIN [Suspect]
     Active Substance: DOXORUBICIN
     Indication: Malignant mediastinal neoplasm
     Dosage: RECEIVED SIX CYCLES UNDER CAP REGIMEN
     Route: 065
  5. PACLITAXEL [Suspect]
     Active Substance: PACLITAXEL
     Indication: Malignant mediastinal neoplasm
     Dosage: RECEIVED ONE CYCLE
     Route: 065
  6. PEMBROLIZUMAB [Suspect]
     Active Substance: PEMBROLIZUMAB
     Indication: Malignant mediastinal neoplasm
     Dosage: RECEIVED TWO CYCLES
     Route: 065

REACTIONS (1)
  - Drug ineffective [Unknown]
